FAERS Safety Report 8285200-5 (Version None)
Quarter: 2012Q2

REPORT INFORMATION
  Report Type: 
  Country: None (occurrence: None)
  Receive Date: 20120413
  Receipt Date: 20111018
  Transmission Date: 20120825
  Serious: No
  Sender: FDA-Public Use
  Company Number: US-ASTRAZENECA-2011SE50958

PATIENT
  Age: 57 Year
  Sex: Female
  Weight: 72.6 kg

DRUGS (6)
  1. SEROQUEL [Suspect]
     Indication: BIPOLAR DISORDER
     Route: 048
  2. NEXIUM [Suspect]
     Route: 048
  3. RANITIDINE [Concomitant]
     Indication: GASTRIC PH DECREASED
  4. ERACON [Concomitant]
     Indication: DEPRESSION
  5. EVEROIN [Concomitant]
     Indication: DEPRESSION
  6. NEXIUM [Suspect]
     Indication: GASTROOESOPHAGEAL REFLUX DISEASE
     Route: 048
     Dates: start: 20070101

REACTIONS (8)
  - GASTROOESOPHAGEAL REFLUX DISEASE [None]
  - MALAISE [None]
  - PAIN [None]
  - GASTRITIS [None]
  - VOMITING [None]
  - DIARRHOEA [None]
  - ABDOMINAL DISCOMFORT [None]
  - DRUG DOSE OMISSION [None]
